FAERS Safety Report 7427531-4 (Version None)
Quarter: 2011Q2

REPORT INFORMATION
  Report Type: 
  Country: None (occurrence: None)
  Receive Date: 20110420
  Receipt Date: 20110418
  Transmission Date: 20111010
  Serious: Yes (Other)
  Sender: FDA-Public Use
  Company Number: AT-ABBOTT-11P-009-0719970-00

PATIENT
  Age: 1 Month
  Sex: Female

DRUGS (6)
  1. ULTIVA [Suspect]
     Indication: OFF LABEL USE
  2. PROPOFOL [Suspect]
     Indication: OFF LABEL USE
  3. SEVOFLURANE [Suspect]
     Indication: PRODUCT USED FOR UNKNOWN INDICATION
  4. THEOSPIREX [Concomitant]
     Indication: OFF LABEL USE
  5. NAROPIN [Suspect]
     Indication: PRODUCT USED FOR UNKNOWN INDICATION
  6. MEXALEN [Concomitant]
     Indication: PRODUCT USED FOR UNKNOWN INDICATION
     Dosage: PER ADMINISTRATION

REACTIONS (3)
  - METABOLIC DISORDER [None]
  - DEVELOPMENTAL DELAY [None]
  - CONVULSION [None]
